FAERS Safety Report 9083113 (Version 1)
Quarter: 2013Q1

REPORT INFORMATION
  Report Type: Report from Study
  Country: JP (occurrence: JP)
  Receive Date: 20130130
  Receipt Date: 20130130
  Transmission Date: 20140127
  Serious: Yes (Death, Life-Threatening, Hospitalization)
  Sender: FDA-Public Use
  Company Number: JP-BRISTOL-MYERS SQUIBB COMPANY-15124159

PATIENT
  Age: 76 Year
  Sex: Female
  Weight: 49 kg

DRUGS (7)
  1. SPRYCEL [Suspect]
     Indication: ACUTE LYMPHOCYTIC LEUKAEMIA
     Dosage: 50X2MG/D22APR09-6MAY10?50X2MG/D:FRM22AP09?70X2MG/D:27APR-6MAY10?140X2MG/D:29OCT-13NOV09
     Route: 048
     Dates: start: 20090422
  2. FILDESIN [Suspect]
     Indication: ACUTE LYMPHOCYTIC LEUKAEMIA
     Dosage: 3MG/D28OCT09-2MAY10?2:3MG/DAY:05NOV2009.?3MG/DAY ON 27APR2010
     Route: 042
     Dates: start: 20091028
  3. JUVELA N [Concomitant]
     Route: 048
  4. METHYCOBAL [Concomitant]
     Route: 048
  5. NORVASC [Concomitant]
     Route: 048
  6. PREDNISOLONE [Concomitant]
     Indication: ACUTE LYMPHOCYTIC LEUKAEMIA
     Route: 048
     Dates: start: 20091029, end: 20100506
  7. OMEPRAZOLE [Concomitant]
     Route: 042
     Dates: start: 20100505, end: 20100510

REACTIONS (8)
  - Malignant neoplasm progression [Fatal]
  - Neutrophil count decreased [Recovering/Resolving]
  - Platelet count decreased [Recovering/Resolving]
  - Anaemia [Recovering/Resolving]
  - Pyrexia [Recovering/Resolving]
  - White blood cell count decreased [Recovering/Resolving]
  - Duodenal ulcer [Recovered/Resolved]
  - Gastrointestinal haemorrhage [Recovering/Resolving]
